FAERS Safety Report 19865107 (Version 1)
Quarter: 2021Q3

REPORT INFORMATION
  Report Type: Spontaneous
  Country: US (occurrence: US)
  Receive Date: 20210922
  Receipt Date: 20210922
  Transmission Date: 20211014
  Serious: Yes (Death, Hospitalization, Other)
  Sender: FDA-Public Use
  Company Number: US-CIPLA LTD.-2020US01164

PATIENT

DRUGS (1)
  1. BLEOMYCIN SULPHATE [Suspect]
     Active Substance: BLEOMYCIN SULFATE
     Indication: VASCULAR MALFORMATION
     Dosage: 7 UNITS OF BLEOMYCIN (1 MG/ML)
     Route: 026

REACTIONS (9)
  - Pneumomediastinum [Fatal]
  - Pulmonary oedema [Fatal]
  - Respiratory distress [Fatal]
  - Pulmonary haemorrhage [Fatal]
  - Pneumothorax [Fatal]
  - Pneumonitis [Fatal]
  - Pulmonary toxicity [Fatal]
  - Pulmonary congestion [Fatal]
  - Respiratory failure [Fatal]
